FAERS Safety Report 9312516 (Version 1)
Quarter: 2013Q2

REPORT INFORMATION
  Report Type: Spontaneous
  Country: IT (occurrence: None)
  Receive Date: 20130520
  Receipt Date: 20130520
  Transmission Date: 20140414
  Serious: No
  Sender: FDA-Public Use
  Company Number: 1304ITA015324

PATIENT
  Age: 2 Year
  Sex: Female
  Weight: 12 kg

DRUGS (2)
  1. ISOCEF [Suspect]
     Indication: CYSTITIS
     Route: 048
     Dates: start: 20130120, end: 20130121
  2. MONYRIL (FOSFOMYCIN TROMETHAMINE) [Concomitant]

REACTIONS (2)
  - Dermatitis allergic [None]
  - Diarrhoea [None]
